FAERS Safety Report 12634540 (Version 2)
Quarter: 2016Q3

REPORT INFORMATION
  Report Type: Report from Study
  Country: BR (occurrence: BR)
  Receive Date: 20160808
  Receipt Date: 20160809
  Transmission Date: 20161109
  Serious: Yes (Hospitalization, Other)
  Sender: FDA-Public Use
  Company Number: PHHY2016BR108392

PATIENT
  Sex: Male
  Weight: 42 kg

DRUGS (4)
  1. CLOPIDOGREL [Concomitant]
     Active Substance: CLOPIDOGREL BISULFATE
     Indication: HYPERTENSION
     Dosage: 2 DF, QD (EVERY 12 HOURS)
     Route: 048
  2. DIOVAN [Suspect]
     Active Substance: VALSARTAN
     Indication: HYPERTENSION
     Dosage: 320 MG, Q12H
     Route: 048
  3. TRAVATAN [Suspect]
     Active Substance: TRAVOPROST
     Indication: GLAUCOMA
     Dosage: UNK UNK, QD (ONCE DAILY)
     Route: 048
  4. TRAVATAN [Suspect]
     Active Substance: TRAVOPROST
     Indication: OCULAR HYPERTENSION

REACTIONS (10)
  - Heart rate decreased [Unknown]
  - Complication associated with device [Unknown]
  - Blood pressure increased [Unknown]
  - Cerebrovascular accident [Unknown]
  - Visual acuity reduced [Unknown]
  - Myocardial infarction [Unknown]
  - Feeling abnormal [Unknown]
  - Arterial occlusive disease [Unknown]
  - Gait disturbance [Unknown]
  - Hemiparesis [Unknown]

NARRATIVE: CASE EVENT DATE: 2013
